FAERS Safety Report 4903416-X (Version None)
Quarter: 2006Q1

REPORT INFORMATION
  Report Type: 
  Country: None (occurrence: None)
  Receive Date: 20060203
  Receipt Date: 20060124
  Transmission Date: 20060701
  Serious: Yes (Other)
  Sender: FDA-Public Use
  Company Number: 2005157694

PATIENT
  Age: 77 Year
  Sex: Male

DRUGS (1)
  1. ZITHROMAX [Suspect]
     Indication: SINOBRONCHITIS
     Dosage: 500 MG (500 MG, DAILY), ORAL
     Route: 048
     Dates: start: 20040827, end: 20040829

REACTIONS (5)
  - ARTHRALGIA [None]
  - DERMATITIS ALLERGIC [None]
  - ENDOCARDITIS [None]
  - JOINT SWELLING [None]
  - SKIN EXFOLIATION [None]
